FAERS Safety Report 20803530 (Version 2)
Quarter: 2022Q2

REPORT INFORMATION
  Report Type: Spontaneous
  Country: FR (occurrence: FR)
  Receive Date: 20220509
  Receipt Date: 20220516
  Transmission Date: 20220721
  Serious: Yes (Hospitalization)
  Sender: FDA-Public Use
  Company Number: None

PATIENT
  Age: 47 Year
  Sex: Male

DRUGS (30)
  1. OLANZAPINE [Suspect]
     Active Substance: OLANZAPINE
     Indication: Schizophrenia
     Dosage: 30 MILLIGRAM, QD (30 MG/D)
     Route: 048
     Dates: start: 20220104, end: 20220107
  2. OLANZAPINE [Suspect]
     Active Substance: OLANZAPINE
     Dosage: 20 MILLIGRAM, QD (20 MG/D)
     Route: 048
     Dates: start: 20220208, end: 20220215
  3. OLANZAPINE [Suspect]
     Active Substance: OLANZAPINE
     Dosage: 40 MILLIGRAM, QD (40 MG/D)
     Route: 048
     Dates: start: 20220114, end: 20220118
  4. OLANZAPINE [Suspect]
     Active Substance: OLANZAPINE
     Dosage: 45 MILLIGRAM, QD (45 MG/D)
     Route: 048
     Dates: start: 20220119, end: 20220201
  5. OLANZAPINE [Suspect]
     Active Substance: OLANZAPINE
     Dosage: 30 MILLIGRAM, QD (30 MG/D)
     Route: 048
     Dates: start: 20220202, end: 20220207
  6. CLOZAPINE [Suspect]
     Active Substance: CLOZAPINE
     Indication: Schizophrenia
     Dosage: 100 MILLIGRAM, QD (100 MG/D)
     Route: 048
     Dates: start: 20220208, end: 20220209
  7. CLOZAPINE [Suspect]
     Active Substance: CLOZAPINE
     Dosage: 150 MILLIGRAM, QD (150 MG/D)
     Route: 048
     Dates: start: 20220215, end: 20220216
  8. CLOZAPINE [Suspect]
     Active Substance: CLOZAPINE
     Dosage: 200 MILLIGRAM, QD (200 MG/D)
     Route: 048
     Dates: start: 20220218, end: 20220221
  9. CLOZAPINE [Suspect]
     Active Substance: CLOZAPINE
     Dosage: 175 MILLIGRAM, QD (175 MG/D)
     Route: 048
     Dates: start: 20220217, end: 20220217
  10. CLOZAPINE [Suspect]
     Active Substance: CLOZAPINE
     Dosage: 300 MILLIGRAM, QD (300 MG/D)
     Route: 048
     Dates: start: 20220227
  11. CLOZAPINE [Suspect]
     Active Substance: CLOZAPINE
     Dosage: 75 MILLIGRAM, QD (75 MG/D)
     Route: 048
     Dates: start: 20220205, end: 20220207
  12. CLOZAPINE [Suspect]
     Active Substance: CLOZAPINE
     Dosage: 125 MILLIGRAM, QD (125 MG/D)
     Route: 048
     Dates: start: 20220210, end: 20220211
  13. CLOZAPINE [Suspect]
     Active Substance: CLOZAPINE
     Dosage: 25 MILLIGRAM, QD (25 MG/D
     Route: 048
     Dates: start: 20220201, end: 20220202
  14. CLOZAPINE [Suspect]
     Active Substance: CLOZAPINE
     Dosage: 50 MILLIGRAM, QD (50 MG/D)
     Route: 048
     Dates: start: 20220203, end: 20220204
  15. CLOZAPINE [Suspect]
     Active Substance: CLOZAPINE
     Dosage: 250 MILLIGRAM, QD (250 MG/D)
     Route: 048
     Dates: start: 20220224, end: 20220224
  16. CHLORPROMAZINE [Suspect]
     Active Substance: CHLORPROMAZINE
     Indication: Schizophrenia
     Dosage: 650 MILLIGRAM, QD (650 MG/D)
     Route: 048
     Dates: start: 20220114
  17. LOXAPINE SUCCINATE [Suspect]
     Active Substance: LOXAPINE SUCCINATE
     Indication: Schizophrenia
     Dosage: 600 MILLIGRAM, QD (600 MG PER DAYY)
     Route: 048
     Dates: start: 20220104, end: 20220114
  18. LOXAPINE SUCCINATE [Suspect]
     Active Substance: LOXAPINE SUCCINATE
     Dosage: 750 MILLIGRAM, QD (750 MG PER DAY)
     Route: 048
     Dates: start: 20220117
  19. HALOPERIDOL [Suspect]
     Active Substance: HALOPERIDOL
     Indication: Schizophrenia
     Dosage: 20 MILLIGRAM, QD (20 MG/D)
     Route: 048
     Dates: start: 20220114, end: 20220119
  20. HALOPERIDOL [Suspect]
     Active Substance: HALOPERIDOL
     Dosage: 45 MILLIGRAM, QD (45 MG/D)
     Route: 048
     Dates: start: 20220130
  21. VALPROATE SODIUM [Suspect]
     Active Substance: VALPROATE SODIUM
     Indication: Schizophrenia
     Dosage: 2000 MILLIGRAM, QD (2000 MG/D)
     Route: 048
     Dates: start: 20220104, end: 20220131
  22. VALPROATE SODIUM [Suspect]
     Active Substance: VALPROATE SODIUM
     Dosage: 1000 MILLIGRAM, QD (1000 MG/D)
     Route: 048
     Dates: start: 20220201
  23. ATROPINE [Suspect]
     Active Substance: ATROPINE
     Indication: Salivary hypersecretion
     Dosage: 2 DOSAGE FORM, QD (2 DROPS PER DAY)
     Route: 048
     Dates: start: 20220221
  24. LITHIUM [Suspect]
     Active Substance: LITHIUM
     Indication: Schizophrenia
     Dosage: 600 MILLIGRAM, QD (600 MG/D)
     Route: 048
     Dates: start: 20220118, end: 20220130
  25. LITHIUM [Suspect]
     Active Substance: LITHIUM
     Dosage: 800 MILLIGRAM, QD (800 MG/D)
     Route: 048
     Dates: start: 20220131
  26. LITHIUM [Suspect]
     Active Substance: LITHIUM
     Dosage: 400 MILLIGRAM, QD (400 MG/D)
     Route: 048
     Dates: start: 20220114, end: 20220117
  27. DIAZEPAM [Suspect]
     Active Substance: DIAZEPAM
     Indication: Schizophrenia
     Dosage: 120 DOSAGE FORM, QD (120 DROPS PER DAY)
     Route: 048
     Dates: start: 20220216
  28. DIAZEPAM [Suspect]
     Active Substance: DIAZEPAM
     Dosage: 90 DOSAGE FORM, QD (90 DROPS PER DAY)
     Route: 048
     Dates: start: 20220104, end: 20220215
  29. POLYETHYLENE GLYCOLS [Concomitant]
     Active Substance: POLYETHYLENE GLYCOLS
     Indication: Constipation
     Dosage: 2 DOSAGE FORM, QD (2 SACHETS PER DAY)
     Route: 048
     Dates: start: 20220104
  30. LOVENOX [Concomitant]
     Active Substance: ENOXAPARIN SODIUM
     Indication: Product used for unknown indication
     Dosage: 2 DOSAGE FORM, QD (2 SACHETS PER DAY)
     Route: 048
     Dates: start: 20220104

REACTIONS (3)
  - Faecaloma [Recovering/Resolving]
  - Peritonitis [Recovering/Resolving]
  - Intestinal obstruction [Recovering/Resolving]

NARRATIVE: CASE EVENT DATE: 20220201
